FAERS Safety Report 17236453 (Version 1)
Quarter: 2020Q1

REPORT INFORMATION
  Report Type: Spontaneous
  Country: CN (occurrence: CN)
  Receive Date: 20200106
  Receipt Date: 20200106
  Transmission Date: 20200409
  Serious: Yes (Other)
  Sender: FDA-Public Use
  Company Number: CN-PFIZER INC-2020000178

PATIENT
  Age: 76 Year
  Sex: Male
  Weight: 70 kg

DRUGS (2)
  1. VFEND [Suspect]
     Active Substance: VORICONAZOLE
     Indication: ANTI-INFECTIVE THERAPY
     Dosage: 0.2 G, 2X/DAY
     Route: 041
     Dates: start: 20191217, end: 20191218
  2. CYCLOSPORINE. [Interacting]
     Active Substance: CYCLOSPORINE

REACTIONS (8)
  - Off label use [Unknown]
  - Product use issue [Unknown]
  - Loss of consciousness [Recovering/Resolving]
  - Restlessness [Recovering/Resolving]
  - Drug interaction [Recovering/Resolving]
  - Cerebrovascular disorder [Recovering/Resolving]
  - Dysarthria [Recovering/Resolving]
  - Somnolence [Recovering/Resolving]

NARRATIVE: CASE EVENT DATE: 20191217
